FAERS Safety Report 18599972 (Version 1)
Quarter: 2020Q4

REPORT INFORMATION
  Report Type: Spontaneous
  Country: US (occurrence: US)
  Receive Date: 20201209
  Receipt Date: 20201209
  Transmission Date: 20210114
  Serious: Yes (Hospitalization)
  Sender: FDA-Public Use
  Company Number: None

PATIENT
  Age: 24 Year
  Sex: Female
  Weight: 42.3 kg

DRUGS (1)
  1. EMSAM [Suspect]
     Active Substance: SELEGILINE
     Indication: MAJOR DEPRESSION
     Dosage: ?          QUANTITY:1 PATCH(ES);?
     Route: 062
     Dates: start: 20200720, end: 20200803

REACTIONS (6)
  - Fall [None]
  - Blood pressure decreased [None]
  - Dizziness [None]
  - Abdominal distension [None]
  - Weight increased [None]
  - Constipation [None]

NARRATIVE: CASE EVENT DATE: 20200804
